FAERS Safety Report 7108813-2 (Version None)
Quarter: 2010Q4

REPORT INFORMATION
  Report Type: 
  Country: None (occurrence: None)
  Receive Date: 20101115
  Receipt Date: 20101115
  Transmission Date: 20110411
  Serious: Yes (Other)
  Sender: FDA-Public Use
  Company Number: None

PATIENT
  Age: 52 Year
  Sex: Female
  Weight: 56.6996 kg

DRUGS (2)
  1. SKELAXIN [Suspect]
     Indication: BACK PAIN
     Dosage: ONE -1- TAB THREE TIES DAY PO
     Route: 048
     Dates: start: 20101027, end: 20101105
  2. SKELAXIN [Suspect]
     Indication: MUSCLE SPASMS
     Dosage: ONE -1- TAB THREE TIES DAY PO
     Route: 048
     Dates: start: 20101027, end: 20101105

REACTIONS (4)
  - DYSPHONIA [None]
  - OROPHARYNGEAL PAIN [None]
  - PRODUCT QUALITY ISSUE [None]
  - SPEECH DISORDER [None]
